FAERS Safety Report 4801618-4 (Version None)
Quarter: 2005Q4

REPORT INFORMATION
  Report Type: 
  Country: None (occurrence: None)
  Receive Date: 20051012
  Receipt Date: 20050928
  Transmission Date: 20060501
  Serious: Yes (Death)
  Sender: FDA-Public Use
  Company Number: BE-2005-020320

PATIENT
  Age: 68 Year
  Sex: Female

DRUGS (7)
  1. FLUDARABINE PHOSPHATE [Suspect]
     Indication: CHRONIC LYMPHOCYTIC LEUKAEMIA
     Dosage: 25 MG/M2, CYCLES, INTRAVENOUS
     Route: 042
     Dates: start: 20040301, end: 20040721
  2. CYCLOPHOSPHAMIDE [Suspect]
     Indication: CHRONIC LYMPHOCYTIC LEUKAEMIA
     Dosage: 250 MG/M2, CYCLES; INTRAVENOUS
     Route: 042
     Dates: start: 20040301, end: 20040721
  3. GLUCOPHAGE [Concomitant]
  4. TENORMIN [Concomitant]
  5. MINIPRESS [Concomitant]
  6. DAFALGAN [Concomitant]
  7. MIXTARD HUMAN 70/30 [Concomitant]

REACTIONS (13)
  - APRAXIA [None]
  - BALANCE DISORDER [None]
  - BLOOD GLUCOSE ABNORMAL [None]
  - BRAIN OEDEMA [None]
  - CARDIAC DISORDER [None]
  - CARDIAC NEOPLASM UNSPECIFIED [None]
  - CARDIOMEGALY [None]
  - DYSPRAXIA [None]
  - FALL [None]
  - INFECTION [None]
  - MENTAL DISORDER [None]
  - NERVOUS SYSTEM DISORDER [None]
  - PULMONARY CONGESTION [None]
